FAERS Safety Report 16118661 (Version 1)
Quarter: 2019Q1

REPORT INFORMATION
  Report Type: Spontaneous
  Country: CA (occurrence: CA)
  Receive Date: 20190326
  Receipt Date: 20190326
  Transmission Date: 20190418
  Serious: Yes (Other)
  Sender: FDA-Public Use
  Company Number: CA-TARO PHARMACEUTICALS USA.,INC-2019SUN00126

PATIENT
  Age: 66 Year
  Sex: Female

DRUGS (16)
  1. ALITRETINOIN [Suspect]
     Active Substance: ALITRETINOIN
     Indication: PUSTULAR PSORIASIS
     Dosage: (ROTATING BETWEEN 10 AND 30 MG) OD
     Route: 065
     Dates: start: 201704
  2. NAPROXEN. [Concomitant]
     Active Substance: NAPROXEN
     Indication: PRODUCT USED FOR UNKNOWN INDICATION
     Dosage: UNK
     Route: 065
  3. NAPROXEN. [Concomitant]
     Active Substance: NAPROXEN
     Dosage: 200 MG, BID
     Route: 065
     Dates: start: 201804
  4. OXYCODONE-ACETAMINOPHEN [Concomitant]
     Active Substance: ACETAMINOPHEN\OXYCODONE HYDROCHLORIDE
     Indication: PUSTULAR PSORIASIS
     Dosage: ONLY TOOK ONCE, NOT REQUIRED BY PATIENT
     Route: 065
     Dates: start: 201805
  5. CEPHALEXIN. [Concomitant]
     Active Substance: CEPHALEXIN
     Dosage: 500 MG, QID
     Route: 065
     Dates: start: 201804
  6. PENICILLIN [Concomitant]
     Active Substance: PENICILLIN
     Indication: PUSTULAR PSORIASIS
     Dosage: 300 MG, TID
     Route: 065
     Dates: start: 201803
  7. MUPIROCIN. [Concomitant]
     Active Substance: MUPIROCIN
     Indication: PUSTULAR PSORIASIS
     Dosage: UNK, TID PRN
     Route: 065
     Dates: start: 201804
  8. ADALIMUMAB [Suspect]
     Active Substance: ADALIMUMAB
     Indication: PUSTULAR PSORIASIS
     Dosage: 80 MG, LOADING DOSE
     Route: 065
     Dates: start: 201803
  9. ADALIMUMAB [Suspect]
     Active Substance: ADALIMUMAB
     Dosage: 40 MG, WEEKLY
     Route: 065
  10. MISOPROSTOL. [Concomitant]
     Active Substance: MISOPROSTOL
     Indication: PRODUCT USED FOR UNKNOWN INDICATION
     Dosage: UNK
     Route: 065
  11. CLOBETASOL [Suspect]
     Active Substance: CLOBETASOL
     Indication: PUSTULAR PSORIASIS
     Dosage: UNK
     Route: 061
     Dates: start: 201805
  12. CLINDAMYCIN. [Concomitant]
     Active Substance: CLINDAMYCIN
     Indication: PUSTULAR PSORIASIS
     Dosage: 300 MG, QID
     Route: 065
     Dates: start: 201805
  13. CEPHALEXIN. [Concomitant]
     Active Substance: CEPHALEXIN
     Indication: PUSTULAR PSORIASIS
     Dosage: 500 MG, QID
     Route: 065
     Dates: start: 201803
  14. ACETAMINOPHEN. [Concomitant]
     Active Substance: ACETAMINOPHEN
     Indication: PUSTULAR PSORIASIS
     Dosage: 100 MG, QID
     Route: 065
     Dates: start: 201804
  15. PREDNISONE. [Concomitant]
     Active Substance: PREDNISONE
     Indication: PUSTULAR PSORIASIS
     Dosage: 30 MG, OD
     Route: 065
     Dates: start: 201803
  16. ACETAMINOPHEN AND CODEINE [Concomitant]
     Active Substance: ACETAMINOPHEN\CODEINE PHOSPHATE
     Indication: PUSTULAR PSORIASIS
     Dosage: UNK, Q4H PRN
     Route: 065
     Dates: start: 201804

REACTIONS (1)
  - Xerophthalmia [Unknown]
